FAERS Safety Report 6923537-X (Version None)
Quarter: 2010Q3

REPORT INFORMATION
  Report Type: 
  Country: None (occurrence: None)
  Receive Date: 20100813
  Receipt Date: 20100804
  Transmission Date: 20110219
  Serious: Yes (Hospitalization)
  Sender: FDA-Public Use
  Company Number: A0865998A

PATIENT
  Age: 58 Year
  Sex: Male

DRUGS (5)
  1. AVANDIA [Suspect]
     Dosage: 2MG PER DAY
     Dates: start: 20060101, end: 20070101
  2. VYTORIN [Concomitant]
  3. METFORMIN HCL [Concomitant]
  4. GLIPIZIDE [Concomitant]
  5. ZESTRIL [Concomitant]

REACTIONS (2)
  - AMNESIA [None]
  - MYOCARDIAL INFARCTION [None]
